FAERS Safety Report 14538352 (Version 1)
Quarter: 2018Q1

REPORT INFORMATION
  Report Type: Spontaneous
  Country: PL (occurrence: PL)
  Receive Date: 20180216
  Receipt Date: 20180216
  Transmission Date: 20180509
  Serious: Yes (Hospitalization)
  Sender: FDA-Public Use
  Company Number: PL-ROCHE-2072643

PATIENT
  Age: 45 Year
  Sex: Female

DRUGS (2)
  1. OMALIZUMAB. [Suspect]
     Active Substance: OMALIZUMAB
     Indication: ASTHMA
  2. OMALIZUMAB. [Suspect]
     Active Substance: OMALIZUMAB
     Indication: URTICARIA CHRONIC
     Route: 058

REACTIONS (10)
  - Autoimmune endocrine disorder [Unknown]
  - Asthenia [Unknown]
  - Addison^s disease [Unknown]
  - Chronic gastritis [Unknown]
  - Autoimmune thyroiditis [Unknown]
  - Abnormal loss of weight [Unknown]
  - Diarrhoea [Unknown]
  - Arthralgia [Unknown]
  - Vomiting [Unknown]
  - Abdominal pain [Unknown]
